FAERS Safety Report 8456171-3 (Version None)
Quarter: 2012Q2

REPORT INFORMATION
  Report Type: 
  Country: None (occurrence: None)
  Receive Date: 20120323
  Receipt Date: 20111012
  Transmission Date: 20120825
  Serious: Yes (Hospitalization)
  Sender: FDA-Public Use
  Company Number: 163-21880-11083010

PATIENT
  Age: 60 Year
  Sex: Male
  Weight: 165.2 kg

DRUGS (3)
  1. DEXAMETHASONE (DEXAMETHASONE) [Concomitant]
  2. VELCADE [Concomitant]
  3. REVLIMID [Suspect]
     Indication: AMYLOIDOSIS
     Dosage: 25 MG, 1 IN 1 D, PO
     Route: 048
     Dates: start: 20110401, end: 20110101

REACTIONS (3)
  - CARDIAC FAILURE CONGESTIVE [None]
  - WEIGHT DECREASED [None]
  - PULMONARY OEDEMA [None]
